FAERS Safety Report 6035359-5 (Version None)
Quarter: 2009Q1

REPORT INFORMATION
  Report Type: 
  Country: None (occurrence: None)
  Receive Date: 20090109
  Receipt Date: 20090109
  Transmission Date: 20090719
  Serious: Yes (Death)
  Sender: FDA-Public Use
  Company Number: None

PATIENT
  Age: 44 Year
  Sex: Female
  Weight: 58.9676 kg

DRUGS (2)
  1. CYMBALTA [Suspect]
     Indication: ANXIETY
     Dates: start: 19990129, end: 20050311
  2. CYMBALTA [Suspect]
     Indication: DEPRESSION
     Dates: start: 19990129, end: 20050311

REACTIONS (1)
  - DEPRESSION [None]
